FAERS Safety Report 25988712 (Version 1)
Quarter: 2025Q4

REPORT INFORMATION
  Report Type: Spontaneous
  Country: EU (occurrence: EU)
  Receive Date: 20251103
  Receipt Date: 20251103
  Transmission Date: 20260117
  Serious: Yes (Death, Other)
  Sender: BRISTOL-MYERS SQUIBB COMPANY
  Company Number: None

PATIENT
  Age: 85 Year
  Sex: Male
  Weight: 82 kg

DRUGS (2)
  1. ELIQUIS [Interacting]
     Active Substance: APIXABAN
     Indication: Thrombosis prophylaxis
     Route: 048
     Dates: start: 202003
  2. PREDNISOLONE [Interacting]
     Active Substance: PREDNISOLONE
     Indication: Chronic obstructive pulmonary disease
     Dosage: DOSAGE: FOR 5 DAYS
     Route: 048
     Dates: start: 20251015

REACTIONS (3)
  - Cardiac arrest [Fatal]
  - Drug interaction [Unknown]
  - Gastrointestinal haemorrhage [Fatal]

NARRATIVE: CASE EVENT DATE: 20251017
